FAERS Safety Report 10264707 (Version 1)
Quarter: 2014Q2

REPORT INFORMATION
  Report Type: Other
  Country: SE (occurrence: SE)
  Receive Date: 20140627
  Receipt Date: 20140627
  Transmission Date: 20141212
  Serious: Yes (Other)
  Sender: FDA-Public Use
  Company Number: SE-ASTELLAS-2014EU008822

PATIENT
  Age: 77 Year
  Sex: Female

DRUGS (1)
  1. BETMIGA [Suspect]
     Indication: PRODUCT USED FOR UNKNOWN INDICATION
     Dosage: UNK, UNKNOWN FREQ.
     Route: 065

REACTIONS (4)
  - Palpitations [Recovered/Resolved]
  - Pruritus [Recovered/Resolved]
  - Chest pain [Recovered/Resolved]
  - Peripheral swelling [Recovered/Resolved]
